FAERS Safety Report 17522082 (Version 1)
Quarter: 2020Q1

REPORT INFORMATION
  Report Type: Spontaneous
  Country: US (occurrence: US)
  Receive Date: 20200310
  Receipt Date: 20200310
  Transmission Date: 20200409
  Serious: No
  Sender: FDA-Public Use
  Company Number: US-ASTRAZENECA-2020SE25760

PATIENT
  Age: 19267 Day
  Sex: Female
  Weight: 97.5 kg

DRUGS (2)
  1. PULMICORT FLEXHALER [Suspect]
     Active Substance: BUDESONIDE
     Indication: ASTHMA
     Dosage: 2 PUFFS DAILY.
     Route: 055
     Dates: start: 20200210
  2. SYMBICORT [Suspect]
     Active Substance: BUDESONIDE\FORMOTEROL FUMARATE DIHYDRATE
     Indication: ASTHMA
     Dosage: 160/4.5UG.
     Route: 055
     Dates: start: 2019

REACTIONS (4)
  - Intentional device misuse [Unknown]
  - Intentional product misuse [Unknown]
  - Breath sounds abnormal [Unknown]
  - Device malfunction [Unknown]

NARRATIVE: CASE EVENT DATE: 20200210
